FAERS Safety Report 4843996-6 (Version None)
Quarter: 2005Q4

REPORT INFORMATION
  Report Type: 
  Country: None (occurrence: None)
  Receive Date: 20051202
  Receipt Date: 20050606
  Transmission Date: 20060501
  Serious: No
  Sender: FDA-Public Use
  Company Number: US-GLAXOSMITHKLINE-A0561411A

PATIENT
  Age: 78 Year
  Sex: Male

DRUGS (4)
  1. AUGMENTIN [Suspect]
     Indication: SINUSITIS
     Dosage: 1MG TWICE PER DAY
     Route: 048
     Dates: start: 20050603
  2. ELMIRON [Concomitant]
  3. LIPITOR [Concomitant]
  4. MUCINEX [Concomitant]

REACTIONS (1)
  - DIARRHOEA [None]
